FAERS Safety Report 26067030 (Version 1)
Quarter: 2025Q4

REPORT INFORMATION
  Report Type: Report from Study
  Country: US (occurrence: US)
  Receive Date: 20251119
  Receipt Date: 20251119
  Transmission Date: 20260117
  Serious: Yes (Other)
  Sender: ABBVIE
  Company Number: US-ABBVIE-6554471

PATIENT
  Age: 60 Year
  Sex: Female

DRUGS (1)
  1. SKYRIZI [Suspect]
     Active Substance: RISANKIZUMAB-RZAA
     Indication: Crohn^s disease
     Route: 042
     Dates: start: 20250908

REACTIONS (6)
  - Lumbar vertebral fracture [Recovering/Resolving]
  - Abdominal pain upper [Recovering/Resolving]
  - Blood pressure decreased [Recovering/Resolving]
  - Fall [Recovering/Resolving]
  - Dizziness [Unknown]
  - Spinal pain [Unknown]

NARRATIVE: CASE EVENT DATE: 20251109
